FAERS Safety Report 13414775 (Version 3)
Quarter: 2023Q2

REPORT INFORMATION
  Report Type: Spontaneous
  Country: US (occurrence: US)
  Receive Date: 20170406
  Receipt Date: 20230405
  Transmission Date: 20230721
  Serious: No
  Sender: FDA-Public Use
  Company Number: US-JNJFOC-20170319800

PATIENT
  Age: 13 Year
  Sex: Male

DRUGS (4)
  1. RISPERDAL [Suspect]
     Active Substance: RISPERIDONE
     Indication: Product used for unknown indication
     Dosage: 08/MAY/2012 - THERAPY START DATE
     Route: 048
  2. INVEGA [Suspect]
     Active Substance: PALIPERIDONE
     Indication: Product used for unknown indication
     Route: 048
     Dates: start: 20111122
  3. INVEGA [Suspect]
     Active Substance: PALIPERIDONE
     Route: 048
     Dates: start: 20120214
  4. RISPERDAL M-TAB [Suspect]
     Active Substance: RISPERIDONE
     Indication: Product used for unknown indication
     Route: 048

REACTIONS (4)
  - Obesity [Unknown]
  - Emotional distress [Unknown]
  - Gynaecomastia [Unknown]
  - Treatment noncompliance [Unknown]
